FAERS Safety Report 12313332 (Version 5)
Quarter: 2016Q3

REPORT INFORMATION
  Report Type: Spontaneous
  Country: US (occurrence: US)
  Receive Date: 20160428
  Receipt Date: 20160929
  Transmission Date: 20161109
  Serious: Yes (Hospitalization, Other)
  Sender: FDA-Public Use
  Company Number: US-PFIZER INC-2016224059

PATIENT
  Age: 73 Year
  Sex: Male
  Weight: 62.5 kg

DRUGS (21)
  1. HYDRALAZINE [Concomitant]
     Active Substance: HYDRALAZINE HYDROCHLORIDE
     Dosage: 75 MG, 2X/DAY (25 MG TAB)
     Route: 048
  2. EXCEDRIN EXTRA STRENGTH [Concomitant]
     Active Substance: ACETAMINOPHEN\ASPIRIN\CAFFEINE
     Indication: MIGRAINE
     Dosage: UNK UNK, AS NEEDED (ACETYLSALICYLIC ACID 250MG, CAFFEINE 65 MG, PARACETAMOL 250 MG), EVERY 4 HRS
     Route: 048
  3. NEURONTIN [Concomitant]
     Active Substance: GABAPENTIN
     Dosage: 300 MG, 1X/DAY (AT BEDTIME)
     Route: 048
  4. PREVACID [Concomitant]
     Active Substance: LANSOPRAZOLE
     Dosage: 15 MG, UNK
  5. BOSULIF [Suspect]
     Active Substance: BOSUTINIB MONOHYDRATE
     Dosage: 400 MG, DAILY
     Route: 048
     Dates: start: 20150527, end: 20160705
  6. ASPIRIN (E.C.) [Concomitant]
     Active Substance: ASPIRIN
     Dosage: 81 MG, DAILY
     Route: 048
  7. LASIX [Concomitant]
     Active Substance: FUROSEMIDE
     Indication: OEDEMA
     Dosage: 20 MG, AS NEEDED
     Route: 048
  8. LANTUS [Concomitant]
     Active Substance: INSULIN GLARGINE
     Dosage: 7 IU, UNK (100IU/ML, 7 IU BEFORE BEDTIME)
  9. FLEXERIL [Concomitant]
     Active Substance: CYCLOBENZAPRINE HYDROCHLORIDE
     Dosage: 10 MG, AS NEEDED
     Route: 048
  10. PRINIVIL [Concomitant]
     Active Substance: LISINOPRIL
     Dosage: 10 MG, DAILY
     Route: 048
  11. LASIX [Concomitant]
     Active Substance: FUROSEMIDE
     Dosage: 40 MG, DAILY
     Route: 048
  12. TOPROL XL [Concomitant]
     Active Substance: METOPROLOL SUCCINATE
     Dosage: 12.5 MG, DAILY
     Route: 048
  13. FLORASTOR [Concomitant]
     Active Substance: SACCHAROMYCES CEREVISIAE
     Dosage: 250 MG, 3X/DAY
     Route: 048
  14. BOSULIF [Suspect]
     Active Substance: BOSUTINIB MONOHYDRATE
     Indication: CHRONIC MYELOID LEUKAEMIA
     Dosage: UNK
     Dates: start: 20131120
  15. HUMALOG [Concomitant]
     Active Substance: INSULIN LISPRO
     Dosage: 7 IU, UNK (100IU/ML, 7 IU BEFORE MEALS)
     Route: 058
  16. LEVAQUIN [Concomitant]
     Active Substance: LEVOFLOXACIN
     Dosage: 750 MG, UNK (EVERY 2 DAYS)
  17. BOSULIF [Suspect]
     Active Substance: BOSUTINIB MONOHYDRATE
     Dosage: 400 MG, DAILY
     Route: 048
     Dates: start: 20131203
  18. LIPITOR [Concomitant]
     Active Substance: ATORVASTATIN CALCIUM
     Dosage: 40 MG, DAILY
     Route: 048
  19. TYLENOL WITH CODEINE [Concomitant]
     Active Substance: ACETAMINOPHEN\CODEINE PHOSPHATE
     Indication: PAIN
     Dosage: UNK UNK, AS NEEDED (CODEINE PHOSPHATE 30 MG, PARACETAMOL 300 MG)
  20. GALZIN [Concomitant]
     Active Substance: ZINC ACETATE
     Dosage: 50 MG, 3X/DAY (25 MG CAPSULE)
     Route: 048
  21. TOPROL XL [Concomitant]
     Active Substance: METOPROLOL SUCCINATE
     Dosage: 50 MG, UNK

REACTIONS (28)
  - Renal impairment [Recovering/Resolving]
  - Klebsiella infection [Unknown]
  - Neutropenia [Unknown]
  - Weight increased [Unknown]
  - Skin exfoliation [Unknown]
  - Pleural effusion [Unknown]
  - Cardiac failure [Recovering/Resolving]
  - Asthenia [Recovered/Resolved]
  - Muscle contusion [Unknown]
  - Generalised oedema [Unknown]
  - Pain [Not Recovered/Not Resolved]
  - Sciatica [Unknown]
  - Blood uric acid increased [Unknown]
  - Decreased appetite [Recovered/Resolved]
  - Wheelchair user [Unknown]
  - Inflammation [Unknown]
  - Gallbladder disorder [Unknown]
  - Oedema [Recovered/Resolved]
  - Diarrhoea [Recovered/Resolved]
  - Back pain [Recovered/Resolved]
  - Blister [Unknown]
  - Cystitis interstitial [Unknown]
  - Fatigue [Recovered/Resolved]
  - Constipation [Not Recovered/Not Resolved]
  - Hyperkalaemia [Unknown]
  - Balance disorder [Unknown]
  - Dizziness [Unknown]
  - Cholelithiasis [Unknown]

NARRATIVE: CASE EVENT DATE: 20150901
